FAERS Safety Report 10030512 (Version 1)
Quarter: 2014Q1

REPORT INFORMATION
  Report Type: Spontaneous
  Country: None (occurrence: US)
  Receive Date: 20140323
  Receipt Date: 20140323
  Transmission Date: 20141002
  Serious: No
  Sender: FDA-Public Use
  Company Number: US-ALLERGAN-1317621US

PATIENT
  Age: 43 Year
  Sex: Female

DRUGS (2)
  1. LATISSE 0.03% [Suspect]
     Indication: GROWTH OF EYELASHES
     Dosage: 1 GTT, QHS
     Route: 047
     Dates: end: 201310
  2. LEVOXYL [Concomitant]
     Indication: THYROIDECTOMY
     Dosage: UNK
     Route: 048

REACTIONS (5)
  - Eyelid margin crusting [Recovering/Resolving]
  - Incorrect dose administered [Unknown]
  - Wrong technique in drug usage process [Unknown]
  - Madarosis [Recovering/Resolving]
  - Eyelids pruritus [Recovering/Resolving]
